FAERS Safety Report 15448237 (Version 3)
Quarter: 2018Q4

REPORT INFORMATION
  Report Type: Report from Study
  Country: None (occurrence: CH)
  Receive Date: 20180929
  Receipt Date: 20181205
  Transmission Date: 20190204
  Serious: Yes (Other)
  Sender: FDA-Public Use
  Company Number: CH-ABBVIE-18S-151-2497080-00

PATIENT
  Sex: Male
  Weight: 54 kg

DRUGS (15)
  1. DUODOPA [Suspect]
     Active Substance: CARBIDOPA\LEVODOPA
     Dosage: MD  4ML, CR 1.5ML/H UNTIL PEG/PEJ IMPLANTATION, CR 1.7ML/H AFTERNOON, ED 0.7ML
     Route: 050
     Dates: start: 20180918, end: 20180918
  2. DAFALGAN [Concomitant]
     Active Substance: ACETAMINOPHEN
     Indication: PRODUCT USED FOR UNKNOWN INDICATION
     Dosage: BEFORE DUODOPA THERAPY AS OF 07-SEP-2018 11AM, 5PM
     Route: 048
  3. REMERON SOLTAB [Concomitant]
     Active Substance: MIRTAZAPINE
     Indication: PRODUCT USED FOR UNKNOWN INDICATION
     Dosage: 8PM
     Route: 048
  4. DUODOPA [Suspect]
     Active Substance: CARBIDOPA\LEVODOPA
     Dosage: MD 4ML, CR 1.7ML/H, ED 0.7ML
     Route: 050
     Dates: start: 20180914, end: 20180918
  5. SIFROL ER [Concomitant]
     Active Substance: PRAMIPEXOLE
     Indication: PRODUCT USED FOR UNKNOWN INDICATION
     Dosage: 8AM
     Route: 048
  6. DUODOPA [Suspect]
     Active Substance: CARBIDOPA\LEVODOPA
     Dosage: MD 7ML, CR 2.0ML/H, ED 1.0ML
     Route: 050
     Dates: start: 20180920
  7. STALEVO [Concomitant]
     Active Substance: CARBIDOPA\ENTACAPONE\LEVODOPA
     Dosage: 50/12.5/200 MG AT 6PM, 10PM
     Route: 048
  8. DUODOPA [Suspect]
     Active Substance: CARBIDOPA\LEVODOPA
     Dosage: MD 4ML, CR 1.5ML/H MORNING, CD 1.7ML/H AFTERNOON, ED 0.7ML
     Route: 050
     Dates: start: 20180919, end: 20180920
  9. DUODOPA [Suspect]
     Active Substance: CARBIDOPA\LEVODOPA
     Indication: PARKINSON^S DISEASE
     Route: 050
     Dates: start: 20180911, end: 20180913
  10. MADOPAR LIQ [Concomitant]
     Indication: PRODUCT USED FOR UNKNOWN INDICATION
     Dosage: 7AM, 11AM
     Route: 048
  11. RIVOTRIL [Concomitant]
     Active Substance: CLONAZEPAM
     Indication: PRODUCT USED FOR UNKNOWN INDICATION
     Dosage: 8PM
  12. DUODOPA [Suspect]
     Active Substance: CARBIDOPA\LEVODOPA
     Dosage: MD 5ML, CR 1.5ML/H MORNING, CR 1.7ML/H AFTERNOON, ED 0.7ML
     Route: 050
     Dates: start: 20180913, end: 20180914
  13. STALEVO [Concomitant]
     Active Substance: CARBIDOPA\ENTACAPONE\LEVODOPA
     Indication: PRODUCT USED FOR UNKNOWN INDICATION
     Dosage: 75/18.75/200 MG AT 7AM, 11AM, 3PM
     Route: 048
  14. DUODART [Concomitant]
     Active Substance: DUTASTERIDE\TAMSULOSIN
     Indication: PRODUCT USED FOR UNKNOWN INDICATION
     Dosage: 0.5/0.4 MG , 8PM
     Route: 048
  15. TARGIN RET [Concomitant]
     Indication: PRODUCT USED FOR UNKNOWN INDICATION
     Dosage: AS OF 07-SEP-2018 ,5/2.5 MG 8AM, 8PM
     Route: 048

REACTIONS (15)
  - Gait disturbance [Unknown]
  - Tinnitus [Unknown]
  - Device dislocation [Recovered/Resolved]
  - Wound complication [Recovering/Resolving]
  - Dyskinesia [Recovering/Resolving]
  - Delayed recovery from anaesthesia [Unknown]
  - Back pain [Recovering/Resolving]
  - Freezing phenomenon [Recovering/Resolving]
  - Secretion discharge [Unknown]
  - Body temperature increased [Unknown]
  - Productive cough [Unknown]
  - On and off phenomenon [Unknown]
  - Headache [Recovering/Resolving]
  - Complication of device insertion [Recovered/Resolved]
  - Somnolence [Unknown]

NARRATIVE: CASE EVENT DATE: 2018
